FAERS Safety Report 8952559 (Version 2)
Quarter: 2012Q4

REPORT INFORMATION
  Report Type: Report from Study
  Country: DE (occurrence: DE)
  Receive Date: 20121205
  Receipt Date: 20121214
  Transmission Date: 20130627
  Serious: Yes (Death, Life-Threatening)
  Sender: FDA-Public Use
  Company Number: DE-OTSUKA-EU-2011-10162

PATIENT
  Sex: Female

DRUGS (25)
  1. SAMSCA [Suspect]
     Indication: INAPPROPRIATE ANTIDIURETIC HORMONE SECRETION
     Dosage: 15 Mg milligram(s), daily dose
     Route: 048
     Dates: start: 20101029, end: 20101103
  2. SAMSCA [Suspect]
     Dosage: 30 Mg milligram(s), daily dose
     Route: 048
     Dates: start: 20101105, end: 20101105
  3. SAMSCA [Suspect]
     Dosage: 15 Mg milligram(s), daily dose
     Route: 048
     Dates: start: 20101106, end: 20101108
  4. SAMSCA [Suspect]
     Dosage: 30 Mg milligram(s), daily dose
     Route: 048
     Dates: start: 20101108, end: 20101109
  5. SAMSCA [Suspect]
     Dosage: 15 Mg milligram(s), daily dose
     Route: 048
     Dates: start: 20101110, end: 20101112
  6. SAMSCA [Suspect]
     Dosage: 30 Mg milligram(s), daily dose
     Route: 048
     Dates: start: 20101113, end: 20101115
  7. SAMSCA [Suspect]
     Dosage: 45 Mg milligram(s), daily dose
     Route: 048
     Dates: start: 20101116, end: 20101118
  8. SAMSCA [Suspect]
     Dosage: 30 Mg milligram(s), daily dose
     Route: 048
     Dates: start: 20101119, end: 20101127
  9. UNACID [Concomitant]
     Indication: URINARY TRACT INFECTION
     Dosage: 750 Mg milligram(s), daily dose
     Route: 048
     Dates: start: 20101123, end: 20101127
  10. UNACID [Concomitant]
     Indication: UROSEPSIS
  11. URSOFALK [Concomitant]
     Indication: BILIARY CIRRHOSIS PRIMARY
     Dosage: 750 Mg milligram(s), daily dose
     Route: 048
  12. FUROSEMID [Concomitant]
     Indication: CORONARY ARTERY DISEASE
     Dosage: 40 Mg milligram(s), daily dose
     Route: 048
     Dates: end: 20101106
  13. FUROSEMID [Concomitant]
     Indication: HYPERTENSION
     Dosage: 20 Mg milligram(s), daily dose
     Route: 048
     Dates: start: 20101106
  14. ZOCOR [Concomitant]
     Indication: HYPERLIPIDAEMIA
     Dosage: 10 Mg milligram(s), daily dose
     Route: 048
  15. DOCITON [Concomitant]
     Indication: PORTAL HYPERTENSION
     Dosage: 20 Mg milligram(s), daily dose
     Route: 048
  16. ASS [Concomitant]
     Indication: CORONARY ARTERY DISEASE
     Dosage: 100 Mg milligram(s), daily dose
     Route: 048
  17. L-THYROXIN [Concomitant]
     Indication: HYPOTHYROIDISM
     Dosage: 100 Mg milligram(s), daily dose
     Route: 048
  18. PREDNISOLON [Concomitant]
     Indication: BILIARY CIRRHOSIS PRIMARY
     Dosage: 7.5 Mg milligram(s), daily dose
     Route: 048
  19. PREDNISOLON [Concomitant]
     Indication: CHRONIC OBSTRUCTIVE PULMONARY DISEASE
  20. SPIRIVA [Concomitant]
     Indication: CHRONIC OBSTRUCTIVE PULMONARY DISEASE
     Dosage: 1 DF dosage form, daily dose
     Route: 007
  21. VIANI [Concomitant]
     Indication: CHRONIC OBSTRUCTIVE PULMONARY DISEASE
     Dosage: 2 DF dosage form, daily dose
     Route: 007
  22. TAZOBACTAM [Concomitant]
     Indication: ERYSIPELAS
     Dosage: 13.5 G gram(s), daily dose
     Route: 042
     Dates: start: 20101028, end: 20101107
  23. FRAGMIN P [Concomitant]
     Indication: THROMBOSIS PROPHYLAXIS
     Dosage: 1 DF dosage form, daily dose
     Route: 058
     Dates: start: 20101028
  24. SALINE [Concomitant]
     Indication: URINARY TRACT INFECTION
     Dosage: UNK
     Route: 065
     Dates: start: 20101028, end: 20101106
  25. SALINE [Concomitant]
     Indication: UROSEPSIS
     Dosage: UNK, unknown
     Route: 065
     Dates: start: 20101112, end: 20101126

REACTIONS (6)
  - Hypothermia [Not Recovered/Not Resolved]
  - Urinary tract infection [Fatal]
  - Urosepsis [Fatal]
  - Arrhythmia [Fatal]
  - Agitation [Recovered/Resolved]
  - Hypokalaemia [Recovered/Resolved]
